FAERS Safety Report 21407728 (Version 1)
Quarter: 2022Q4

REPORT INFORMATION
  Report Type: Spontaneous
  Country: US (occurrence: None)
  Receive Date: 20221004
  Receipt Date: 20221004
  Transmission Date: 20230113
  Serious: Yes (Hospitalization)
  Sender: FDA-Public Use
  Company Number: None

PATIENT
  Age: 64 Year
  Sex: Male
  Weight: 94.72 kg

DRUGS (5)
  1. FINASTERIDE [Suspect]
     Active Substance: FINASTERIDE
     Indication: Benign prostatic hyperplasia
     Dosage: FREQUENCY : DAILY;?
     Route: 048
     Dates: start: 20211221, end: 20220930
  2. Atorvastatin Calcium 40mg PO daily [Concomitant]
     Dates: start: 20220106
  3. Cholecalciferol 50000 units PO Q28D [Concomitant]
     Dates: start: 20210222
  4. Divalproex ER 1500mg PO daily [Concomitant]
     Dates: start: 20220818
  5. Levothyroxine 50mcg PO daily [Concomitant]
     Dates: start: 20220412

REACTIONS (1)
  - Mania [None]

NARRATIVE: CASE EVENT DATE: 20220930
